FAERS Safety Report 8066041-0 (Version None)
Quarter: 2012Q1

REPORT INFORMATION
  Report Type: 
  Country: None (occurrence: None)
  Receive Date: 20120124
  Receipt Date: 20120113
  Transmission Date: 20120608
  Serious: Yes (Other)
  Sender: FDA-Public Use
  Company Number: ES-JNJFOC-20120106218

PATIENT
  Age: 60 Year
  Sex: Male

DRUGS (6)
  1. REMICADE [Suspect]
     Indication: PSORIATIC ARTHROPATHY
     Route: 042
     Dates: start: 20021118
  2. STATINS NOS [Concomitant]
  3. TORSEMIDE [Concomitant]
  4. ACE INHIBITOR NOS [Concomitant]
  5. METHOTREXATE [Concomitant]
  6. GEMFIBROZIL [Concomitant]

REACTIONS (1)
  - BASAL CELL CARCINOMA [None]
